FAERS Safety Report 7776642-2 (Version None)
Quarter: 2011Q3

REPORT INFORMATION
  Report Type: 
  Country: None (occurrence: None)
  Receive Date: 20110922
  Receipt Date: 20110922
  Transmission Date: 20111222
  Serious: Yes (Death)
  Sender: FDA-Public Use
  Company Number: None

PATIENT
  Age: 78 Year
  Sex: Female
  Weight: 84.36 kg

DRUGS (12)
  1. DECITABINE [Suspect]
     Indication: MYELODYSPLASTIC SYNDROME
     Dosage: 0.2MG/KG 3X/WK SUB-Q INJ
     Route: 058
  2. COZAAR [Concomitant]
  3. MEVACOR [Concomitant]
  4. SENNOSIDES-DOCUSATE [Concomitant]
  5. CIPROFLOXACIN [Concomitant]
  6. NITROSTAT [Concomitant]
  7. PROZAC [Concomitant]
  8. CENTRUM SILVER [Concomitant]
  9. ATENOLOL [Concomitant]
  10. ACYCLOVIR [Concomitant]
  11. OXYCODONE [Concomitant]
  12. PRILOSEC [Concomitant]

REACTIONS (5)
  - FEBRILE NEUTROPENIA [None]
  - MENTAL STATUS CHANGES [None]
  - PNEUMONIA FUNGAL [None]
  - RESPIRATORY FAILURE [None]
  - ENTEROCOCCAL BACTERAEMIA [None]
